FAERS Safety Report 25832063 (Version 1)
Quarter: 2025Q3

REPORT INFORMATION
  Report Type: Spontaneous
  Country: US (occurrence: None)
  Receive Date: 20250921
  Receipt Date: 20250921
  Transmission Date: 20251021
  Serious: Yes (Hospitalization, Disabling)
  Sender: FDA-CTU
  Company Number: None

PATIENT
  Age: 71 Year
  Sex: Female
  Weight: 61.2 kg

DRUGS (4)
  1. SEMAGLUTIDE [Suspect]
     Active Substance: SEMAGLUTIDE
     Indication: Weight control
     Route: 050
     Dates: start: 20240924, end: 20250812
  2. REPATHA [Concomitant]
     Active Substance: EVOLOCUMAB
  3. repinoal [Concomitant]
  4. ASPIRIN [Concomitant]
     Active Substance: ASPIRIN

REACTIONS (7)
  - Optic ischaemic neuropathy [None]
  - Product communication issue [None]
  - Blindness unilateral [None]
  - Nausea [None]
  - Headache [None]
  - Product measured potency issue [None]
  - Product communication issue [None]

NARRATIVE: CASE EVENT DATE: 20250812
